FAERS Safety Report 15880855 (Version 1)
Quarter: 2019Q1

REPORT INFORMATION
  Report Type: Spontaneous
  Country: IT (occurrence: IT)
  Receive Date: 20190128
  Receipt Date: 20190128
  Transmission Date: 20190417
  Serious: Yes (Hospitalization, Other)
  Sender: FDA-Public Use
  Company Number: IT-MYLANLABS-2019M1006747

PATIENT
  Age: 43 Year
  Sex: Female

DRUGS (1)
  1. OLANZAPINE MYLAN [Suspect]
     Active Substance: OLANZAPINE
     Indication: PSYCHOTIC DISORDER
     Dosage: UNK
     Route: 065

REACTIONS (11)
  - Eyelid ptosis [Unknown]
  - Muscle disorder [Unknown]
  - Areflexia [Unknown]
  - Loss of consciousness [Unknown]
  - Ventricular fibrillation [Unknown]
  - Oculogyric crisis [Unknown]
  - Atrial fibrillation [Unknown]
  - Bradycardia [Unknown]
  - Condition aggravated [Unknown]
  - Procalcitonin increased [Unknown]
  - Dystonia [Unknown]
